FAERS Safety Report 19828377 (Version 2)
Quarter: 2021Q3

REPORT INFORMATION
  Report Type: Spontaneous
  Country: AR (occurrence: AR)
  Receive Date: 20210914
  Receipt Date: 20210922
  Transmission Date: 20211014
  Serious: Yes (Other)
  Sender: FDA-Public Use
  Company Number: AR-PFIZER INC-202101151833

PATIENT
  Age: 76 Year
  Sex: Male

DRUGS (7)
  1. SOMAVERT [Suspect]
     Active Substance: PEGVISOMANT
     Indication: ACROMEGALY
     Dosage: 10 MG, 7 TIMES PER WEEK
     Dates: start: 20160626
  2. HIDROTISONA [Concomitant]
     Dosage: UNK
  3. EUTIROX [Concomitant]
     Active Substance: LEVOTHYROXINE SODIUM
     Dosage: UNK
  4. LERCADIP [LERCANIDIPINE] [Concomitant]
     Dosage: UNK
  5. LOTRIAL [ENALAPRILAT] [Concomitant]
     Dosage: UNK
  6. DIUREX A [Concomitant]
     Dosage: UNK
  7. MIOPROPAN S [Concomitant]
     Dosage: UNK

REACTIONS (1)
  - Hip fracture [Recovered/Resolved]

NARRATIVE: CASE EVENT DATE: 20210712
